FAERS Safety Report 9646246 (Version 3)
Quarter: 2013Q4

REPORT INFORMATION
  Report Type: Spontaneous
  Country: US (occurrence: US)
  Receive Date: 20131025
  Receipt Date: 20131126
  Transmission Date: 20140711
  Serious: Yes (Other)
  Sender: FDA-Public Use
  Company Number: US-ABBVIE-13P-163-1137721-00

PATIENT
  Age: 21 Year
  Sex: Female
  Weight: 55.84 kg

DRUGS (7)
  1. HUMIRA [Suspect]
     Indication: CROHN^S DISEASE
     Dosage: STARTER KIT + 3 DOSES
     Dates: start: 20130627, end: 20130627
  2. HUMIRA [Suspect]
     Dates: end: 20130708
  3. PREDNISONE [Suspect]
     Indication: CROHN^S DISEASE
     Dates: start: 201305, end: 201308
  4. ENTOCORT [Concomitant]
     Indication: PRODUCT USED FOR UNKNOWN INDICATION
     Route: 048
     Dates: end: 201305
  5. ANALPRAM E [Concomitant]
     Indication: PRODUCT USED FOR UNKNOWN INDICATION
  6. PENTASA [Concomitant]
     Indication: PRODUCT USED FOR UNKNOWN INDICATION
     Route: 048
  7. ORTHO TRI-CYCLEN [Concomitant]
     Indication: PRODUCT USED FOR UNKNOWN INDICATION
     Route: 048

REACTIONS (3)
  - Hodgkin^s disease nodular sclerosis stage II [Unknown]
  - Candida infection [Unknown]
  - Metastatic neoplasm [Unknown]
